FAERS Safety Report 8188282-4 (Version None)
Quarter: 2012Q1

REPORT INFORMATION
  Report Type: 
  Country: None (occurrence: None)
  Receive Date: 20120306
  Receipt Date: 20120227
  Transmission Date: 20120608
  Serious: Yes (Other)
  Sender: FDA-Public Use
  Company Number: DE-JNJFOC-20120212762

PATIENT
  Age: 28 Year
  Sex: Female

DRUGS (2)
  1. XEPLION [Suspect]
     Indication: SCHIZOPHRENIA, DISORGANISED TYPE
     Route: 030
     Dates: start: 20120119, end: 20120119
  2. RISPERDAL CONSTA [Suspect]
     Indication: SCHIZOPHRENIA, DISORGANISED TYPE
     Route: 030

REACTIONS (5)
  - HYPERHIDROSIS [None]
  - HYPERTENSION [None]
  - DELIRIUM [None]
  - TACHYCARDIA [None]
  - HALLUCINATION [None]
